FAERS Safety Report 7406876-8 (Version None)
Quarter: 2011Q2

REPORT INFORMATION
  Report Type: 
  Country: None (occurrence: None)
  Receive Date: 20110404
  Receipt Date: 20110404
  Transmission Date: 20111010
  Serious: Yes (Hospitalization, Other)
  Sender: FDA-Public Use
  Company Number: None

PATIENT
  Sex: Female
  Weight: 64.4108 kg

DRUGS (1)
  1. MIRENA [Suspect]

REACTIONS (12)
  - NIGHT SWEATS [None]
  - DEPRESSION [None]
  - DRY SKIN [None]
  - PRURITUS [None]
  - PYREXIA [None]
  - HOT FLUSH [None]
  - ALOPECIA [None]
  - WEIGHT INCREASED [None]
  - MIGRAINE [None]
  - ACNE [None]
  - INSOMNIA [None]
  - URINARY TRACT INFECTION [None]
